FAERS Safety Report 8686215 (Version 2)
Quarter: 2014Q1

REPORT INFORMATION
  Report Type: Spontaneous
  Country: US (occurrence: US)
  Receive Date: 20120726
  Receipt Date: 20140301
  Transmission Date: 20141002
  Serious: Yes (Hospitalization)
  Sender: FDA-Public Use
  Company Number: US-ASTRAZENECA-2011SE62115

PATIENT
  Age: 60 Year
  Sex: Female
  Weight: 77.1 kg

DRUGS (20)
  1. SEROQUEL [Suspect]
     Indication: BIPOLAR DISORDER
     Route: 048
     Dates: start: 2001
  2. SEROQUEL [Suspect]
     Indication: SCHIZOAFFECTIVE DISORDER
     Route: 048
     Dates: start: 2001
  3. SEROQUEL [Suspect]
     Indication: BIPOLAR DISORDER
     Route: 048
     Dates: start: 2001
  4. SEROQUEL [Suspect]
     Indication: SCHIZOAFFECTIVE DISORDER
     Route: 048
     Dates: start: 2001
  5. SEROQUEL [Suspect]
     Indication: BIPOLAR DISORDER
     Dosage: 100 MG IN THE MORNING AND 300 MG HS
     Route: 048
     Dates: start: 2011
  6. SEROQUEL [Suspect]
     Indication: SCHIZOAFFECTIVE DISORDER
     Dosage: 100 MG IN THE MORNING AND 300 MG HS
     Route: 048
     Dates: start: 2011
  7. SEROQUEL [Suspect]
     Indication: BIPOLAR DISORDER
     Route: 048
     Dates: start: 2003
  8. SEROQUEL [Suspect]
     Indication: SCHIZOAFFECTIVE DISORDER
     Route: 048
     Dates: start: 2003
  9. SEROQUEL [Suspect]
     Indication: BIPOLAR DISORDER
     Dosage: GENERIC, 700 MG DAILY
     Route: 065
     Dates: start: 2003
  10. SEROQUEL [Suspect]
     Indication: SCHIZOAFFECTIVE DISORDER
     Dosage: GENERIC, 700 MG DAILY
     Route: 065
     Dates: start: 2003
  11. LITHIUM [Concomitant]
     Indication: BIPOLAR DISORDER
     Dosage: 1 CAPSULE IN THE MORNING AND 2 CAPULES HS
     Route: 048
  12. LITHIUM [Concomitant]
     Indication: SCHIZOAFFECTIVE DISORDER
     Dosage: 1 CAPSULE IN THE MORNING AND 2 CAPULES HS
     Route: 048
  13. SYNTHROID [Concomitant]
     Indication: BIPOLAR DISORDER
     Route: 048
  14. SYNTHROID [Concomitant]
     Indication: SCHIZOAFFECTIVE DISORDER
     Route: 048
  15. WELLBUTRIN XL [Concomitant]
     Indication: BIPOLAR DISORDER
     Route: 048
  16. WELLBUTRIN XL [Concomitant]
     Indication: SCHIZOAFFECTIVE DISORDER
     Route: 048
  17. TOPIRAMATE [Concomitant]
     Indication: MIGRAINE
     Route: 048
  18. TEGRETOL [Concomitant]
     Indication: AFFECTIVE DISORDER
     Route: 048
  19. PRISTIQ [Concomitant]
     Indication: ANTIDEPRESSANT THERAPY
     Route: 048
  20. PRISTIQ [Concomitant]
     Indication: ANTIDEPRESSANT THERAPY
     Route: 048

REACTIONS (8)
  - Suicidal ideation [Unknown]
  - Pain in extremity [Not Recovered/Not Resolved]
  - Dysgeusia [Not Recovered/Not Resolved]
  - Decreased appetite [Not Recovered/Not Resolved]
  - Bone disorder [Unknown]
  - Tremor [Unknown]
  - Weight increased [Not Recovered/Not Resolved]
  - Increased appetite [Recovered/Resolved]
